FAERS Safety Report 26076158 (Version 2)
Quarter: 2025Q4

REPORT INFORMATION
  Report Type: Spontaneous
  Country: TH (occurrence: TH)
  Receive Date: 20251121
  Receipt Date: 20251125
  Transmission Date: 20260117
  Serious: Yes (Other)
  Sender: PFIZER
  Company Number: TH-MLMSERVICE-20251110-PI706575-00270-1

PATIENT
  Age: 44 Year
  Sex: Male

DRUGS (6)
  1. METHYLPREDNISOLONE SODIUM SUCCINATE [Suspect]
     Active Substance: METHYLPREDNISOLONE SODIUM SUCCINATE
     Indication: Peripheral sensory neuropathy
     Dosage: 500 MG
     Route: 042
  2. PREDNISOLONE [Suspect]
     Active Substance: PREDNISOLONE
     Indication: Peripheral sensory neuropathy
     Dosage: 40 MG DAILY
     Route: 048
  3. BISOPROLOL [Concomitant]
     Active Substance: BISOPROLOL
     Indication: Atrial fibrillation
     Dosage: UNK
  4. BISOPROLOL [Concomitant]
     Active Substance: BISOPROLOL
     Indication: Hypertension
  5. EDOXABAN [Concomitant]
     Active Substance: EDOXABAN
     Indication: Hypertension
     Dosage: UNK
  6. EDOXABAN [Concomitant]
     Active Substance: EDOXABAN
     Indication: Atrial fibrillation

REACTIONS (2)
  - Pseudo Cushing^s syndrome [Unknown]
  - Off label use [Unknown]
